FAERS Safety Report 5031797-8 (Version None)
Quarter: 2006Q2

REPORT INFORMATION
  Report Type: 
  Country: None (occurrence: None)
  Receive Date: 20060616
  Receipt Date: 20060605
  Transmission Date: 20061013
  Serious: Yes (Life-Threatening, Hospitalization)
  Sender: FDA-Public Use
  Company Number: MEDI-0004634

PATIENT
  Age: 9 Month
  Sex: Female
  Weight: 7 kg

DRUGS (1)
  1. SYNAGIS [Suspect]
     Indication: ANTIVIRAL PROPHYLAXIS
     Dosage: 1 IN 30 D, INTRAMUSCULAR
     Route: 030
     Dates: end: 20060301

REACTIONS (2)
  - DRUG INEFFECTIVE [None]
  - PNEUMONIA RESPIRATORY SYNCYTIAL VIRAL [None]
